FAERS Safety Report 5443960-2 (Version None)
Quarter: 2007Q3

REPORT INFORMATION
  Report Type: 
  Country: None (occurrence: None)
  Receive Date: 20070905
  Receipt Date: 20070824
  Transmission Date: 20080115
  Serious: Yes (Other)
  Sender: FDA-Public Use
  Company Number: US-PFIZER INC-2007072667

PATIENT
  Sex: Male
  Weight: 138.63 kg

DRUGS (6)
  1. CHANTIX [Suspect]
     Indication: SMOKING CESSATION THERAPY
     Dosage: DAILY DOSE:.5MG
  2. OXYCONTIN [Concomitant]
  3. HEPARIN [Concomitant]
  4. WARFARIN SODIUM [Concomitant]
  5. ZETIA [Concomitant]
  6. LABETALOL HCL [Concomitant]

REACTIONS (3)
  - BLOOD DISORDER [None]
  - DYSGEUSIA [None]
  - PROTHROMBIN TIME SHORTENED [None]
